FAERS Safety Report 5084312-7 (Version None)
Quarter: 2006Q3

REPORT INFORMATION
  Report Type: 
  Country: None (occurrence: None)
  Receive Date: 20060816
  Receipt Date: 20060803
  Transmission Date: 20061208
  Serious: Yes (Hospitalization, Disabling, Other)
  Sender: FDA-Public Use
  Company Number: T200600852

PATIENT
  Age: 55 Year
  Sex: Male

DRUGS (4)
  1. HEXABRIX [Suspect]
     Indication: CATHETERISATION CARDIAC
     Dosage: 85 ML SINGLE
     Dates: start: 20060406, end: 20060406
  2. NEOSYNEPHRINE (PHENYLPHRINE HYDROCHLORIDE) [Concomitant]
  3. SOLU-MEDROL [Concomitant]
  4. LEVOPHED [Concomitant]

REACTIONS (3)
  - ANAPHYLACTIC REACTION [None]
  - HYPOTENSION [None]
  - RESPIRATORY FAILURE [None]
